FAERS Safety Report 4411724-4 (Version None)
Quarter: 2004Q3

REPORT INFORMATION
  Report Type: 
  Country: None (occurrence: None)
  Receive Date: 20040728
  Receipt Date: 20040713
  Transmission Date: 20050211
  Serious: Yes (Other)
  Sender: FDA-Public Use
  Company Number: 04-273-0747

PATIENT

DRUGS (2)
  1. KETOROLAC INJ., USP 30 MG/1ML, BEN VENUE LABS [Suspect]
     Dates: start: 20040701
  2. DIHYDROERGOTAMINE 1MG/ML, BEN VENUE LABS [Suspect]

REACTIONS (1)
  - MEDICATION ERROR [None]
